FAERS Safety Report 12059199 (Version 1)
Quarter: 2016Q1

REPORT INFORMATION
  Report Type: Spontaneous
  Country: CH (occurrence: CH)
  Receive Date: 20160210
  Receipt Date: 20160210
  Transmission Date: 20160526
  Serious: Yes (Hospitalization, Other)
  Sender: FDA-Public Use
  Company Number: CH-AMGEN-CHESP2015132570

PATIENT
  Age: 67 Year
  Sex: Female

DRUGS (1)
  1. PROLIA [Suspect]
     Active Substance: DENOSUMAB
     Indication: OSTEOPOROSIS
     Dosage: 60 MG, Q6MO
     Route: 058
     Dates: start: 20150326

REACTIONS (14)
  - Coronary artery disease [Unknown]
  - Vomiting [Unknown]
  - Peptic ulcer [Unknown]
  - Duodenal ulcer perforation [Unknown]
  - Urinary incontinence [Unknown]
  - Nausea [Recovered/Resolved]
  - Breast cancer [Recovering/Resolving]
  - Syncope [Recovered/Resolved]
  - Seizure [Recovered/Resolved]
  - Coronary artery stenosis [Unknown]
  - Transaminases increased [Unknown]
  - Muscle twitching [Unknown]
  - Arteriosclerosis coronary artery [Unknown]
  - Cataract [Unknown]

NARRATIVE: CASE EVENT DATE: 20150328
